FAERS Safety Report 8015029-4 (Version None)
Quarter: 2011Q4

REPORT INFORMATION
  Report Type: 
  Country: None (occurrence: None)
  Receive Date: 20111230
  Receipt Date: 20111221
  Transmission Date: 20120403
  Serious: No
  Sender: FDA-Public Use
  Company Number: US-BIOGENIDEC-2011BI013712

PATIENT
  Sex: Female

DRUGS (1)
  1. TYSABRI [Suspect]
     Indication: MULTIPLE SCLEROSIS
     Route: 042
     Dates: start: 20090216

REACTIONS (7)
  - FATIGUE [None]
  - VISION BLURRED [None]
  - WEIGHT INCREASED [None]
  - BACK DISORDER [None]
  - ARTHROPATHY [None]
  - PARAESTHESIA [None]
  - MUSCULOSKELETAL DISORDER [None]
